FAERS Safety Report 8901350 (Version 1)
Quarter: 2012Q4

REPORT INFORMATION
  Report Type: Report from Study
  Country: US (occurrence: US)
  Receive Date: 20121108
  Receipt Date: 20121108
  Transmission Date: 20130627
  Serious: Yes (Hospitalization)
  Sender: FDA-Public Use
  Company Number: US-ABBOTT-12P-163-0950340-00

PATIENT
  Age: 50 Year
  Sex: Female
  Weight: 74.91 kg

DRUGS (1)
  1. HUMIRA [Suspect]
     Indication: PSORIATIC ARTHROPATHY
     Route: 058
     Dates: start: 20120515

REACTIONS (6)
  - Hyperhidrosis [Unknown]
  - Syncope [Unknown]
  - Chest pain [Unknown]
  - Dyspnoea [Unknown]
  - Syncope [Unknown]
  - Heart rate increased [Unknown]
